FAERS Safety Report 18860806 (Version 3)
Quarter: 2021Q1

REPORT INFORMATION
  Report Type: Report from Study
  Country: US (occurrence: US)
  Receive Date: 20210208
  Receipt Date: 20210225
  Transmission Date: 20210420
  Serious: Yes (Hospitalization, Other)
  Sender: FDA-Public Use
  Company Number: US-PFIZER INC-2021046126

PATIENT
  Age: 73 Year
  Sex: Female
  Weight: 46.4 kg

DRUGS (16)
  1. BNT?162A1. [Suspect]
     Active Substance: BNT-162A1
     Indication: COVID-19 IMMUNISATION
     Dosage: SINGLE DOSE
     Route: 030
     Dates: start: 20201001, end: 20201001
  2. BLINDED BNT162C2 [Suspect]
     Active Substance: PIDACMERAN
     Indication: COVID-19 IMMUNISATION
     Dosage: SINGLE DOSE
     Route: 030
     Dates: start: 20201001, end: 20201001
  3. BLINDED BNT162B2 [Suspect]
     Active Substance: TOZINAMERAN
     Indication: COVID-19 IMMUNISATION
     Dosage: SINGLE DOSE
     Route: 030
     Dates: start: 20201001, end: 20201001
  4. PLACEBO [Suspect]
     Active Substance: UNSPECIFIED INGREDIENT
     Indication: COVID-19 IMMUNISATION
     Dosage: SINGLE DOSE
     Route: 030
     Dates: start: 20201001, end: 20201001
  5. CAMPTOSAR [Suspect]
     Active Substance: IRINOTECAN HYDROCHLORIDE
     Indication: ADENOCARCINOMA PANCREAS
     Dosage: 180 MG, ONCE
     Route: 042
     Dates: start: 20210107, end: 20210107
  6. SYNTHROID [Concomitant]
     Active Substance: LEVOTHYROXINE SODIUM
     Indication: HYPOTHYROIDISM
     Dosage: UNK
     Dates: start: 2014
  7. NEULASTA [Concomitant]
     Active Substance: PEGFILGRASTIM
     Indication: CYTOPENIA
     Dosage: UNK
     Dates: start: 20210109, end: 20210109
  8. PRILOSEC [Concomitant]
     Active Substance: OMEPRAZOLE MAGNESIUM
     Indication: ADENOCARCINOMA PANCREAS
     Dosage: UNK
     Dates: start: 20201127
  9. BLINDED BNT162B1 [Suspect]
     Active Substance: ABDAVOMERAN
     Indication: COVID-19 IMMUNISATION
     Dosage: SINGLE DOSE
     Route: 030
     Dates: start: 20201001, end: 20201001
  10. ADRUCIL [Suspect]
     Active Substance: FLUOROURACIL
     Indication: ADENOCARCINOMA PANCREAS
     Dosage: 3500 MG, ONCE
     Route: 042
     Dates: start: 20210107, end: 20210107
  11. ELOXATIN [Suspect]
     Active Substance: OXALIPLATIN
     Indication: ADENOCARCINOMA PANCREAS
     Dosage: 115 MG, ONCE
     Route: 042
     Dates: start: 20210107, end: 20210107
  12. BENTYL [Concomitant]
     Active Substance: DICYCLOMINE HYDROCHLORIDE
     Indication: IRRITABLE BOWEL SYNDROME
     Dosage: UNK
     Dates: start: 201911
  13. WELLCOVORIN [Suspect]
     Active Substance: LEUCOVORIN CALCIUM
     Indication: ADENOCARCINOMA PANCREAS
     Dosage: 400 MG, ONCE
     Route: 042
     Dates: start: 20210107, end: 20210107
  14. CREON [Concomitant]
     Active Substance: PANCRELIPASE AMYLASE\PANCRELIPASE LIPASE\PANCRELIPASE PROTEASE
     Indication: ADENOCARCINOMA PANCREAS
     Dosage: UNK
     Dates: start: 20201127
  15. LIPITOR [Concomitant]
     Active Substance: ATORVASTATIN CALCIUM
     Indication: DYSLIPIDAEMIA
     Dosage: UNK
     Dates: start: 2018
  16. COLACE [Concomitant]
     Active Substance: DOCUSATE SODIUM
     Indication: IRRITABLE BOWEL SYNDROME
     Dosage: UNK
     Dates: start: 2010

REACTIONS (1)
  - Enterocolitis [Not Recovered/Not Resolved]

NARRATIVE: CASE EVENT DATE: 20210115
